FAERS Safety Report 10759177 (Version 1)
Quarter: 2015Q1

REPORT INFORMATION
  Report Type: Spontaneous
  Country: US (occurrence: None)
  Receive Date: 20150202
  Receipt Date: 20150202
  Transmission Date: 20150721
  Serious: Yes (Other)
  Sender: FDA-Public Use
  Company Number: None

PATIENT
  Age: 52 Year
  Sex: Female
  Weight: 87.54 kg

DRUGS (1)
  1. DULERA [Suspect]
     Active Substance: FORMOTEROL FUMARATE DIHYDRATE\MOMETASONE FUROATE
     Indication: PRODUCT USED FOR UNKNOWN INDICATION
     Dosage: TWO PUFFS 2 X DAY
     Route: 055
     Dates: start: 20150101, end: 20150115

REACTIONS (5)
  - Product substitution issue [None]
  - Product quality issue [None]
  - Arthralgia [None]
  - Peripheral swelling [None]
  - Asthma [None]

NARRATIVE: CASE EVENT DATE: 20150101
